FAERS Safety Report 4468364-0 (Version None)
Quarter: 2004Q4

REPORT INFORMATION
  Report Type: 
  Country: None (occurrence: None)
  Receive Date: 20041007
  Receipt Date: 20040205
  Transmission Date: 20050328
  Serious: Yes (Other)
  Sender: FDA-Public Use
  Company Number: US-GLAXOSMITHKLINE-A0496762A

PATIENT
  Age: 48 Year
  Sex: Male
  Weight: 79.1 kg

DRUGS (1)
  1. AVANDIA [Suspect]
     Indication: DIABETES MELLITUS NON-INSULIN-DEPENDENT
     Dosage: 8MG UNKNOWN
     Route: 048

REACTIONS (2)
  - OEDEMA PERIPHERAL [None]
  - PNEUMONIA [None]
